FAERS Safety Report 22343260 (Version 1)
Quarter: 2023Q2

REPORT INFORMATION
  Report Type: Spontaneous
  Country: US (occurrence: US)
  Receive Date: 20230519
  Receipt Date: 20230519
  Transmission Date: 20230721
  Serious: No
  Sender: FDA-Public Use
  Company Number: US-SA-SAC20230518000833

PATIENT
  Sex: Female
  Weight: 104.99 kg

DRUGS (2)
  1. AUBAGIO [Suspect]
     Active Substance: TERIFLUNOMIDE
     Indication: Vitamin D deficiency
     Dosage: 14 MG, QD
     Route: 048
     Dates: start: 201909
  2. AUBAGIO [Suspect]
     Active Substance: TERIFLUNOMIDE
     Indication: Multiple sclerosis

REACTIONS (2)
  - Cough [Unknown]
  - Nasopharyngitis [Unknown]
